FAERS Safety Report 22272245 (Version 1)
Quarter: 2023Q2

REPORT INFORMATION
  Report Type: Other
  Country: US (occurrence: None)
  Receive Date: 20230502
  Receipt Date: 20230502
  Transmission Date: 20230722
  Serious: Yes (Other)
  Sender: FDA-Public Use
  Company Number: US-ROCHE-3334749

PATIENT
  Age: 68 Year
  Sex: Female

DRUGS (1)
  1. OCREVUS [Suspect]
     Active Substance: OCRELIZUMAB
     Indication: Multiple sclerosis
     Dosage: 600 MG IV FOR EVERY 24 WEEKS, DATE OF TREATMENT: 29/SEP/2021, 28/SEP/2022, 29/MAR/2022, 15/SEP/2021,
     Route: 065
     Dates: start: 20210901

REACTIONS (1)
  - Urinary tract infection [Recovered/Resolved]

NARRATIVE: CASE EVENT DATE: 20230405
